FAERS Safety Report 6770300-9 (Version None)
Quarter: 2010Q2

REPORT INFORMATION
  Report Type: 
  Country: None (occurrence: None)
  Receive Date: 20100607
  Receipt Date: 20100527
  Transmission Date: 20101027
  Serious: Yes (Disabling, Other)
  Sender: FDA-Public Use
  Company Number: WAES 1005USA04619

PATIENT
  Age: 81 Year
  Sex: Male

DRUGS (1)
  1. CAP VORINOSTAT UNK [Suspect]
     Indication: CHRONIC LYMPHOCYTIC LEUKAEMIA
     Dosage: UNK/UNK/PO
     Route: 048

REACTIONS (1)
  - DEAFNESS [None]
